FAERS Safety Report 4666215-2 (Version None)
Quarter: 2005Q2

REPORT INFORMATION
  Report Type: 
  Country: None (occurrence: None)
  Receive Date: 20050518
  Receipt Date: 20050505
  Transmission Date: 20051028
  Serious: Yes (Other)
  Sender: FDA-Public Use
  Company Number: 2005016316

PATIENT
  Sex: Female

DRUGS (6)
  1. NEURONTIN [Suspect]
     Indication: FIBROMYALGIA
     Dosage: SEE IMAGE
     Route: 048
     Dates: start: 19980101
  2. TOPAMAX [Suspect]
     Indication: FIBROMYALGIA
     Dosage: 150 MG (75 MG, 2 IN 1 D), ORAL
     Route: 048
     Dates: start: 20050201, end: 20050503
  3. PREDNISONE [Concomitant]
  4. ELAVIL [Concomitant]
  5. FLEXERIL [Concomitant]
  6. CLONAZEPAM [Concomitant]

REACTIONS (19)
  - ANOREXIA [None]
  - ASTHMA [None]
  - BLOOD GLUCOSE INCREASED [None]
  - BLOOD PRESSURE INCREASED [None]
  - CHRONIC FATIGUE SYNDROME [None]
  - COMPLEX REGIONAL PAIN SYNDROME [None]
  - CONDITION AGGRAVATED [None]
  - DRUG INEFFECTIVE [None]
  - FATIGUE [None]
  - FIBROMYALGIA [None]
  - HEADACHE [None]
  - HEPATIC ENZYME INCREASED [None]
  - INCISION SITE COMPLICATION [None]
  - INCISIONAL HERNIA REPAIR [None]
  - MUSCLE ATROPHY [None]
  - NAUSEA [None]
  - PHARMACEUTICAL PRODUCT COMPLAINT [None]
  - POST PROCEDURAL COMPLICATION [None]
  - WEIGHT INCREASED [None]
